FAERS Safety Report 18469162 (Version 2)
Quarter: 2021Q1

REPORT INFORMATION
  Report Type: Report from Study
  Country: BE (occurrence: BE)
  Receive Date: 20201105
  Receipt Date: 20210223
  Transmission Date: 20210419
  Serious: Yes (Hospitalization)
  Sender: FDA-Public Use
  Company Number: BE-TAKEDA-2020TUS045917

PATIENT
  Sex: Female

DRUGS (19)
  1. AUGMENTIN [Concomitant]
     Active Substance: AMOXICILLIN\CLAVULANATE POTASSIUM
     Dosage: UNK
  2. PLASMALYTE [Concomitant]
     Active Substance: ELECTROLYTES NOS
     Dosage: UNK
  3. ISO?BETADINE [Concomitant]
     Active Substance: POVIDONE-IODINE
     Dosage: UNK
  4. PANTOPRAZOLE TEVA [Concomitant]
     Active Substance: PANTOPRAZOLE SODIUM
     Dosage: UNK
  5. VANCOMYCINE [VANCOMYCIN] [Concomitant]
     Active Substance: VANCOMYCIN
     Dosage: UNK
  6. CETIRIZINE [Concomitant]
     Active Substance: CETIRIZINE HYDROCHLORIDE
     Dosage: UNK
  7. GENTAMYCINE B.BRAUN [Concomitant]
     Dosage: UNK
  8. PIPERACILLINE [PIPERACILLIN] [Concomitant]
     Active Substance: PIPERACILLIN
     Dosage: UNK
  9. KALIUMCHLORIDE [Concomitant]
     Dosage: UNK
  10. PARACETAMOL FRESENIUS [Concomitant]
     Dosage: UNK
  11. VEDOLIZUMAB [Suspect]
     Active Substance: VEDOLIZUMAB
     Indication: INFLAMMATORY BOWEL DISEASE
     Dosage: UNK
     Route: 042
     Dates: start: 20191123
  12. TAZOBACTAM [Concomitant]
     Active Substance: TAZOBACTAM
     Dosage: UNK
  13. PANTOMED [DEXPANTHENOL] [Concomitant]
     Dosage: UNK
  14. INOTYOL [HAMAMELIS VIRGINIANA;ICHTHAMMOL;TITANIUM DIOXIDE;ZINC OXIDE] [Concomitant]
     Dosage: UNK
  15. MERCILON [Concomitant]
     Active Substance: DESOGESTREL\ETHINYL ESTRADIOL
     Dosage: UNK
  16. FRAXIPARINE [Concomitant]
     Active Substance: NADROPARIN CALCIUM
     Dosage: UNK
  17. DAFALGAN FORTE [Concomitant]
     Dosage: UNK
  18. BELLOZAL [Concomitant]
     Active Substance: BILASTINE
     Dosage: UNK
  19. NATRIUMCHLORIDE [Concomitant]
     Active Substance: SODIUM CHLORIDE
     Dosage: UNK

REACTIONS (4)
  - Device related infection [Recovered/Resolved]
  - Eczema [Recovered/Resolved]
  - Ovarian cyst [Recovered/Resolved]
  - Cervical dysplasia [Recovered/Resolved]

NARRATIVE: CASE EVENT DATE: 20200129
